FAERS Safety Report 21731696 (Version 1)
Quarter: 2022Q4

REPORT INFORMATION
  Report Type: Spontaneous
  Country: ES (occurrence: ES)
  Receive Date: 20221215
  Receipt Date: 20221215
  Transmission Date: 20230113
  Serious: Yes (Life-Threatening, Hospitalization)
  Sender: FDA-Public Use
  Company Number: ES-AEMPS-1294923

PATIENT
  Age: 60 Year
  Sex: Female

DRUGS (3)
  1. AZITHROMYCIN [Suspect]
     Active Substance: AZITHROMYCIN
     Indication: Tuberculosis
     Dosage: 500 MILLIGRAM, QD 1 TAB DAILY
     Route: 048
     Dates: start: 20221027
  2. RIFAMPIN [Suspect]
     Active Substance: RIFAMPIN
     Indication: Tuberculosis
     Dosage: 600 MILLIGRAM, QD 1 TAB DAILY
     Route: 048
     Dates: start: 20221027, end: 20221117
  3. MYAMBUTOL [Suspect]
     Active Substance: ETHAMBUTOL HYDROCHLORIDE
     Indication: Tuberculosis
     Dosage: 800 MILLIGRAM, QD
     Route: 048
     Dates: start: 20221027

REACTIONS (2)
  - Thrombocytopenia [Recovering/Resolving]
  - Subcutaneous haematoma [Recovering/Resolving]

NARRATIVE: CASE EVENT DATE: 20221114
